FAERS Safety Report 9555271 (Version 1)
Quarter: 2013Q3

REPORT INFORMATION
  Report Type: Report from Study
  Country: US (occurrence: US)
  Receive Date: 20130926
  Receipt Date: 20130926
  Transmission Date: 20140515
  Serious: Yes (Other)
  Sender: FDA-Public Use
  Company Number: US-ROCHE-1278926

PATIENT
  Age: 52 Year
  Sex: Female
  Weight: 50.85 kg

DRUGS (29)
  1. HERCEPTIN [Suspect]
     Indication: BREAST CANCER
     Route: 065
     Dates: start: 20121106
  2. HERCEPTIN [Suspect]
     Route: 065
     Dates: start: 20121127
  3. HERCEPTIN [Suspect]
     Route: 065
     Dates: start: 20130102
  4. HERCEPTIN [Suspect]
     Route: 065
     Dates: start: 20130122
  5. HERCEPTIN [Suspect]
     Route: 065
     Dates: start: 20130213
  6. HERCEPTIN [Suspect]
     Route: 065
     Dates: start: 20130312
  7. HERCEPTIN [Suspect]
     Route: 065
     Dates: start: 20130319
  8. HERCEPTIN [Suspect]
     Route: 065
     Dates: start: 200706, end: 200801
  9. HERCEPTIN [Suspect]
     Route: 065
     Dates: start: 200801, end: 200804
  10. HERCEPTIN [Suspect]
     Route: 065
     Dates: start: 200902, end: 200906
  11. HERCEPTIN [Suspect]
     Route: 065
     Dates: start: 201012, end: 201201
  12. PACLITAXEL [Concomitant]
     Route: 065
     Dates: start: 20130312
  13. PACLITAXEL [Concomitant]
     Route: 065
     Dates: start: 20130319
  14. DEXAMETHASONE [Concomitant]
     Route: 065
     Dates: start: 20130312
  15. DEXAMETHASONE [Concomitant]
     Route: 065
     Dates: start: 20130319
  16. FAMOTIDINE [Concomitant]
     Route: 065
     Dates: start: 20130312
  17. FAMOTIDINE [Concomitant]
     Route: 065
     Dates: start: 20130319
  18. KYTRIL [Concomitant]
     Route: 065
     Dates: start: 20130312
  19. KYTRIL [Concomitant]
     Route: 065
     Dates: start: 20130319
  20. NORMAL SALINE [Concomitant]
     Route: 065
     Dates: start: 20130312
  21. NORMAL SALINE [Concomitant]
     Route: 065
     Dates: start: 20130319
  22. ALPRAZOLAM [Concomitant]
  23. LEXAPRO [Concomitant]
  24. BENICAR [Concomitant]
  25. FEMARA [Concomitant]
     Dosage: EVERY DAY FOR 100 DAYS
     Route: 048
  26. AMBIEN [Concomitant]
     Dosage: AT BEDTIME
     Route: 065
  27. ZOLADEX [Concomitant]
  28. TYKERB [Concomitant]
  29. XELODA [Concomitant]
     Route: 065

REACTIONS (5)
  - Pancytopenia [Recovered/Resolved]
  - Disease progression [Unknown]
  - Osteonecrosis [Unknown]
  - Cough [Unknown]
  - Musculoskeletal pain [Unknown]
